FAERS Safety Report 12124657 (Version 1)
Quarter: 2016Q1

REPORT INFORMATION
  Report Type: Other
  Country: US (occurrence: US)
  Receive Date: 20160229
  Receipt Date: 20160229
  Transmission Date: 20160526
  Serious: Yes (Hospitalization)
  Sender: FDA-Public Use
  Company Number: JP-WARNER CHILCOTT 2015-001181

PATIENT
  Age: 24 Year
  Sex: Female

DRUGS (2)
  1. ESTROSTEP FE [Suspect]
     Active Substance: ETHINYL ESTRADIOL\NORETHINDRONE ACETATE
     Route: 048
  2. ALBUTEROL. [Concomitant]
     Active Substance: ALBUTEROL

REACTIONS (17)
  - Hypertriglyceridaemia [Recovering/Resolving]
  - Pancreatitis acute [Recovering/Resolving]
  - Vomiting [Recovering/Resolving]
  - Abdominal pain [Recovering/Resolving]
  - Sinus tachycardia [Recovering/Resolving]
  - Mucosal dryness [Recovering/Resolving]
  - Costovertebral angle tenderness [Recovering/Resolving]
  - Urinary tract infection [Recovering/Resolving]
  - Splenomegaly [Recovering/Resolving]
  - Dyslipidaemia [Recovering/Resolving]
  - Inflammation [Recovering/Resolving]
  - Hyponatraemia [Recovering/Resolving]
  - Hypocalcaemia [Recovering/Resolving]
  - Nausea [Recovering/Resolving]
  - Abdominal tenderness [Recovering/Resolving]
  - Back pain [Recovering/Resolving]
  - Leukocytosis [Recovering/Resolving]
